FAERS Safety Report 9997858 (Version 2)
Quarter: 2014Q1

REPORT INFORMATION
  Report Type: Spontaneous
  Country: JP (occurrence: JP)
  Receive Date: 20140311
  Receipt Date: 20140319
  Transmission Date: 20141002
  Serious: Yes (Hospitalization)
  Sender: FDA-Public Use
  Company Number: JP-PFIZER INC-2014066974

PATIENT
  Sex: 0

DRUGS (2)
  1. AZULFIDINE EN [Suspect]
     Dosage: UNK
     Route: 048
  2. BREDININ [Suspect]
     Dosage: UNK

REACTIONS (1)
  - Herpes zoster [Unknown]
